FAERS Safety Report 19371970 (Version 2)
Quarter: 2021Q2

REPORT INFORMATION
  Report Type: Spontaneous
  Country: DE (occurrence: DE)
  Receive Date: 20210603
  Receipt Date: 20210615
  Transmission Date: 20210717
  Serious: No
  Sender: FDA-Public Use
  Company Number: DE-BAUSCH-BL-2021-018668

PATIENT
  Sex: Male

DRUGS (40)
  1. CLONAZEPAM. [Suspect]
     Active Substance: CLONAZEPAM
     Indication: GENERALISED TONIC-CLONIC SEIZURE
  2. LAMOTRIGINE. [Suspect]
     Active Substance: LAMOTRIGINE
     Indication: EPILEPSY WITH MYOCLONIC-ATONIC SEIZURES
     Route: 065
     Dates: start: 201306
  3. BROMINE [Suspect]
     Active Substance: BROMINE
     Indication: PETIT MAL EPILEPSY
  4. VALPROATE [Suspect]
     Active Substance: VALPROIC ACID
     Indication: PETIT MAL EPILEPSY
  5. PRIMIDONE. [Suspect]
     Active Substance: PRIMIDONE
     Indication: GENERALISED TONIC-CLONIC SEIZURE
  6. CLONAZEPAM. [Suspect]
     Active Substance: CLONAZEPAM
     Indication: PETIT MAL EPILEPSY
  7. LAMOTRIGINE. [Suspect]
     Active Substance: LAMOTRIGINE
     Indication: MYOCLONIC EPILEPSY
  8. LEVETIRACETAM. [Suspect]
     Active Substance: LEVETIRACETAM
     Indication: PETIT MAL EPILEPSY
  9. ZONEGRAN [Suspect]
     Active Substance: ZONISAMIDE
     Indication: GENERALISED TONIC-CLONIC SEIZURE
  10. VALPROATE [Suspect]
     Active Substance: VALPROIC ACID
     Indication: GENERALISED TONIC-CLONIC SEIZURE
  11. LEVETIRACETAM. [Suspect]
     Active Substance: LEVETIRACETAM
     Indication: MYOCLONIC EPILEPSY
  12. CLOBAZAM. [Suspect]
     Active Substance: CLOBAZAM
     Indication: PETIT MAL EPILEPSY
  13. METHYLPREDNISOLONE. [Suspect]
     Active Substance: METHYLPREDNISOLONE
     Indication: GENERALISED TONIC-CLONIC SEIZURE
  14. PRIMIDONE. [Suspect]
     Active Substance: PRIMIDONE
     Indication: EPILEPSY WITH MYOCLONIC-ATONIC SEIZURES
     Route: 065
  15. PRIMIDONE. [Suspect]
     Active Substance: PRIMIDONE
     Indication: PETIT MAL EPILEPSY
  16. CLOBAZAM. [Suspect]
     Active Substance: CLOBAZAM
     Indication: EPILEPSY WITH MYOCLONIC-ATONIC SEIZURES
     Route: 065
     Dates: end: 2013
  17. METHYLPREDNISOLONE. [Suspect]
     Active Substance: METHYLPREDNISOLONE
     Indication: MYOCLONIC EPILEPSY
  18. CLONAZEPAM. [Suspect]
     Active Substance: CLONAZEPAM
     Indication: MYOCLONIC EPILEPSY
  19. BROMINE [Suspect]
     Active Substance: BROMINE
     Indication: EPILEPSY WITH MYOCLONIC-ATONIC SEIZURES
     Route: 065
     Dates: start: 201306
  20. BROMINE [Suspect]
     Active Substance: BROMINE
     Indication: MYOCLONIC EPILEPSY
  21. ZONEGRAN [Suspect]
     Active Substance: ZONISAMIDE
     Indication: PETIT MAL EPILEPSY
  22. ETHOSUXIMIDE. [Suspect]
     Active Substance: ETHOSUXIMIDE
     Indication: PETIT MAL EPILEPSY
  23. ETHOSUXIMIDE. [Suspect]
     Active Substance: ETHOSUXIMIDE
     Indication: MYOCLONIC EPILEPSY
  24. CLONAZEPAM. [Suspect]
     Active Substance: CLONAZEPAM
     Indication: EPILEPSY WITH MYOCLONIC-ATONIC SEIZURES
     Route: 065
     Dates: start: 201306
  25. LEVETIRACETAM. [Suspect]
     Active Substance: LEVETIRACETAM
     Indication: GENERALISED TONIC-CLONIC SEIZURE
  26. CLOBAZAM. [Suspect]
     Active Substance: CLOBAZAM
     Indication: GENERALISED TONIC-CLONIC SEIZURE
  27. ZONEGRAN [Suspect]
     Active Substance: ZONISAMIDE
     Indication: EPILEPSY WITH MYOCLONIC-ATONIC SEIZURES
     Route: 065
  28. ZONEGRAN [Suspect]
     Active Substance: ZONISAMIDE
     Indication: MYOCLONIC EPILEPSY
  29. VALPROATE [Suspect]
     Active Substance: VALPROIC ACID
     Indication: MYOCLONIC EPILEPSY
  30. METHYLPREDNISOLONE. [Suspect]
     Active Substance: METHYLPREDNISOLONE
     Indication: PETIT MAL EPILEPSY
  31. PRIMIDONE. [Suspect]
     Active Substance: PRIMIDONE
     Indication: MYOCLONIC EPILEPSY
  32. BROMINE [Suspect]
     Active Substance: BROMINE
     Indication: GENERALISED TONIC-CLONIC SEIZURE
  33. LEVETIRACETAM. [Suspect]
     Active Substance: LEVETIRACETAM
     Indication: EPILEPSY WITH MYOCLONIC-ATONIC SEIZURES
     Route: 065
  34. VALPROATE [Suspect]
     Active Substance: VALPROIC ACID
     Indication: EPILEPSY WITH MYOCLONIC-ATONIC SEIZURES
     Route: 065
     Dates: start: 201306, end: 2013
  35. METHYLPREDNISOLONE. [Suspect]
     Active Substance: METHYLPREDNISOLONE
     Indication: EPILEPSY WITH MYOCLONIC-ATONIC SEIZURES
     Dosage: PULSATILE
     Route: 065
  36. ETHOSUXIMIDE. [Suspect]
     Active Substance: ETHOSUXIMIDE
     Indication: GENERALISED TONIC-CLONIC SEIZURE
     Dosage: REINTRODUCED
     Route: 065
  37. LAMOTRIGINE. [Suspect]
     Active Substance: LAMOTRIGINE
     Indication: GENERALISED TONIC-CLONIC SEIZURE
  38. LAMOTRIGINE. [Suspect]
     Active Substance: LAMOTRIGINE
     Indication: PETIT MAL EPILEPSY
  39. CLOBAZAM. [Suspect]
     Active Substance: CLOBAZAM
     Indication: MYOCLONIC EPILEPSY
  40. ETHOSUXIMIDE. [Suspect]
     Active Substance: ETHOSUXIMIDE
     Indication: EPILEPSY WITH MYOCLONIC-ATONIC SEIZURES
     Route: 065

REACTIONS (2)
  - Adverse drug reaction [Unknown]
  - Therapy non-responder [Unknown]
